FAERS Safety Report 7552465-4 (Version None)
Quarter: 2011Q2

REPORT INFORMATION
  Report Type: 
  Country: None (occurrence: None)
  Receive Date: 20110616
  Receipt Date: 20110613
  Transmission Date: 20111010
  Serious: Yes (Death)
  Sender: FDA-Public Use
  Company Number: JP-GENZYME-FLUD-1000493

PATIENT
  Sex: Male
  Weight: 50 kg

DRUGS (37)
  1. FLUDARA [Suspect]
     Indication: STEM CELL TRANSPLANT
  2. HYDROCORTISONE SODIUM PHOSPHATE [Concomitant]
     Indication: PYREXIA
  3. ACETAMINOPHEN [Concomitant]
     Indication: PYREXIA
     Dosage: UNK
     Dates: start: 20100129, end: 20100723
  4. OMEPRAZOLE [Concomitant]
     Indication: PROPHYLAXIS AGAINST GASTROINTESTINAL ULCER
     Dosage: UNK
     Dates: start: 20100316
  5. METHYLPREDNISOLONE SODIUM SUCCINATE [Concomitant]
     Indication: PROPHYLAXIS
     Dosage: UNK
     Dates: start: 20100727
  6. IDARUBICIN HYDROCHLORIDE [Concomitant]
     Indication: ACUTE MYELOID LEUKAEMIA
     Dosage: UNK
     Dates: start: 20100727, end: 20100729
  7. GRANISETRON HCL [Concomitant]
     Indication: PROPHYLAXIS OF NAUSEA AND VOMITING
     Dosage: UNK
     Dates: start: 20100727, end: 20100731
  8. BIAPENEM [Concomitant]
     Indication: FEBRILE NEUTROPENIA
     Dosage: UNK
     Dates: start: 20100718, end: 20100727
  9. URSODIOL [Concomitant]
     Indication: BLOOD BILIRUBIN INCREASED
     Dosage: 200 MG, TID
     Dates: start: 20100129
  10. ITRACONAZOLE [Concomitant]
     Indication: ANTIFUNGAL PROPHYLAXIS
     Dosage: UNK
     Dates: start: 20100318
  11. LENOGRASTIM [Concomitant]
     Indication: NEUTROPENIA
     Dosage: UNK
     Dates: start: 20100807, end: 20100809
  12. RED BLOOD CELLS [Concomitant]
     Indication: ACUTE MYELOID LEUKAEMIA
     Dosage: UNK
  13. CIPROFLOXACIN [Concomitant]
     Indication: FEBRILE NEUTROPENIA
     Dosage: UNK
     Dates: start: 20100228
  14. FLUDARA [Suspect]
     Indication: ACUTE MYELOID LEUKAEMIA
     Dosage: 45 MG, QD
     Route: 065
     Dates: start: 20100727, end: 20100731
  15. VALACYCLOVIR HYDROCHLORIDE [Concomitant]
     Indication: HERPES ZOSTER
     Dosage: UNK
     Dates: start: 20100711
  16. LEVOFLOXACIN [Concomitant]
     Indication: ANTIBIOTIC PROPHYLAXIS
     Dosage: UNK
     Dates: start: 20100427, end: 20100722
  17. CYCLOSPORINE [Concomitant]
     Indication: PROPHYLAXIS AGAINST GRAFT VERSUS HOST DISEASE
     Dosage: UNK
     Dates: start: 20100801, end: 20100808
  18. ACYCLOVIR [Concomitant]
     Indication: ANTIVIRAL PROPHYLAXIS
     Dosage: UNK
     Dates: start: 20100215, end: 20100721
  19. TRIMETHOPRIM + SULFAMETHOXAZOLE [Concomitant]
     Indication: ANTIFUNGAL PROPHYLAXIS
     Dosage: UNK
     Dates: start: 20100326
  20. URSODIOL [Concomitant]
     Indication: LIVER ABSCESS
  21. THYMOGLOBULIN [Suspect]
     Indication: STEM CELL TRANSPLANT
  22. MAGNESIUM OXIDE [Concomitant]
     Indication: CONSTIPATION PROPHYLAXIS
     Dosage: UNK
     Dates: start: 20100519
  23. VANCOMYCIN [Concomitant]
     Indication: FEBRILE NEUTROPENIA
     Dosage: UNK
     Dates: start: 20100215, end: 20100806
  24. FUROSEMIDE [Concomitant]
     Indication: OEDEMA
     Dosage: UNK
     Dates: start: 20100131
  25. CYTARABINE [Concomitant]
     Indication: ACUTE MYELOID LEUKAEMIA
     Dosage: UNK
     Dates: start: 20100727, end: 20100806
  26. THYMOGLOBULIN [Suspect]
     Indication: ACUTE MYELOID LEUKAEMIA
     Dosage: 125 MG, ONCE
     Route: 042
     Dates: start: 20100129, end: 20100129
  27. HYDROCORTISONE SODIUM PHOSPHATE [Concomitant]
     Indication: PREMEDICATION
  28. ACETAMINOPHEN [Concomitant]
     Indication: ALLERGY PROPHYLAXIS
  29. PLATELETS [Concomitant]
     Indication: ACUTE MYELOID LEUKAEMIA
     Dosage: UNK
  30. HYDROCORTISONE SODIUM PHOSPHATE [Concomitant]
     Indication: FEBRILE NEUTROPENIA
     Dosage: 100 MG, UNK
     Route: 042
     Dates: start: 20100129, end: 20100723
  31. ALLOPURINOL [Concomitant]
     Indication: PROPHYLAXIS
     Dosage: UNK
     Dates: start: 20100709
  32. ZOPICLONE [Concomitant]
     Indication: INSOMNIA
     Dosage: UNK
     Dates: start: 20100318
  33. GEMTUZUMAB OZOGAMICIN [Concomitant]
     Indication: ACUTE MYELOID LEUKAEMIA RECURRENT
     Dosage: UNK
     Dates: start: 20100709, end: 20100709
  34. GLUTATHIONE [Concomitant]
     Indication: BLOOD BILIRUBIN INCREASED
     Dosage: UNK
     Dates: start: 20100222
  35. CEFEPIME HYDROCHLORIDE [Concomitant]
     Indication: FEBRILE NEUTROPENIA
     Dosage: UNK
     Dates: start: 20100715, end: 20100718
  36. HYDROXYZINE HYDROCHLORIDE [Concomitant]
     Indication: ALLERGY PROPHYLAXIS
     Dosage: 25 MG, UNK
     Route: 042
     Dates: start: 20100129
  37. HYDROXYZINE HYDROCHLORIDE [Concomitant]
     Indication: PREMEDICATION

REACTIONS (4)
  - ABNORMAL BEHAVIOUR [None]
  - ACUTE GRAFT VERSUS HOST DISEASE [None]
  - HICCUPS [None]
  - DISSEMINATED INTRAVASCULAR COAGULATION [None]
